FAERS Safety Report 8221032-1 (Version None)
Quarter: 2012Q1

REPORT INFORMATION
  Report Type: 
  Country: None (occurrence: None)
  Receive Date: 20120320
  Receipt Date: 20120314
  Transmission Date: 20120608
  Serious: Yes (Other)
  Sender: FDA-Public Use
  Company Number: BR-PFIZER INC-2012068475

PATIENT
  Sex: Female

DRUGS (1)
  1. DEPO-PROVERA [Suspect]
     Dosage: EVERY THREE MONTHS
     Route: 030

REACTIONS (4)
  - SWELLING [None]
  - AMNESIA [None]
  - AMENORRHOEA [None]
  - ALOPECIA [None]
